FAERS Safety Report 8759531 (Version 1)
Quarter: 2012Q4

REPORT INFORMATION
  Report Type: 
  Country: US (occurrence: US)
  Receive Date: 20120829
  Receipt Date: 20120829
  Transmission Date: 20130627
  Serious: No
  Sender: FDA-Public Use
  Company Number: US-BAYER-2012-085973

PATIENT
  Age: 59 Year
  Sex: Female

DRUGS (4)
  1. BETASERON [Suspect]
     Dosage: 0.25 ml, QOD
     Route: 058
     Dates: start: 20120717
  2. BETASERON [Suspect]
     Dosage: 0.5 ml, QOD
     Dates: start: 20120801
  3. BETASERON [Suspect]
     Dosage: 0.75 ml, QOD
     Dates: start: 20120816
  4. BETASERON [Suspect]
     Dosage: UNK

REACTIONS (4)
  - Heart rate increased [None]
  - Insomnia [None]
  - Depression [None]
  - Depressed mood [None]
